FAERS Safety Report 11532246 (Version 1)
Quarter: 2015Q3

REPORT INFORMATION
  Report Type: Spontaneous
  Country: JP (occurrence: JP)
  Receive Date: 20150921
  Receipt Date: 20150921
  Transmission Date: 20151125
  Serious: Yes (Other)
  Sender: FDA-Public Use
  Company Number: JP-TAKEDA-2014TJP016056

PATIENT
  Age: 75 Year
  Sex: Female

DRUGS (17)
  1. METFORMIN HYDROCHLORIDE. [Concomitant]
     Active Substance: METFORMIN HYDROCHLORIDE
     Indication: TYPE 2 DIABETES MELLITUS
     Dosage: 250 MG, TID
     Route: 048
  2. KLARICID [Concomitant]
     Active Substance: CLARITHROMYCIN
     Dosage: 200 MG, BID
     Route: 048
     Dates: start: 20110908
  3. AMLODIN [Concomitant]
     Active Substance: AMLODIPINE BESYLATE
     Dosage: 5 MG, QD
     Route: 048
  4. METGLUCO [Concomitant]
     Active Substance: METFORMIN HYDROCHLORIDE
     Indication: TYPE 2 DIABETES MELLITUS
     Dosage: 250 MG, TID
     Route: 048
     Dates: start: 20110616
  5. BASEN [Concomitant]
     Active Substance: VOGLIBOSE
     Indication: TYPE 2 DIABETES MELLITUS
     Dosage: 0.3 MG, QD
     Route: 048
     Dates: start: 20120524
  6. MEDICON                            /00048102/ [Concomitant]
     Active Substance: DEXTROMETHORPHAN HYDROBROMIDE
     Indication: PRODUCTIVE COUGH
     Dosage: 15 MG, TID
     Route: 048
     Dates: start: 20110908
  7. MUCOSOLVAN [Concomitant]
     Active Substance: AMBROXOL\CLENBUTEROL
     Indication: PRODUCTIVE COUGH
     Dosage: 15 MG, TID
     Route: 048
     Dates: start: 20110908
  8. BONOTEO [Concomitant]
     Active Substance: MINODRONIC ACID
     Dosage: 50 MG, Q4WEEKS
     Route: 048
     Dates: start: 20140227
  9. JANUVIA [Concomitant]
     Active Substance: SITAGLIPTIN PHOSPHATE
     Dosage: 100 MG, QD
     Route: 048
     Dates: start: 20110414
  10. BASEN [Concomitant]
     Active Substance: VOGLIBOSE
     Dosage: 0.3 MG, TID
     Route: 048
     Dates: start: 20120621
  11. SHAKUYAKUKANZOTO [Concomitant]
     Active Substance: HERBALS
     Dosage: 2.5 G, QD
     Route: 048
     Dates: start: 20120216
  12. BONOTEO [Concomitant]
     Active Substance: MINODRONIC ACID
     Dosage: 50 MG, QD
     Route: 048
     Dates: start: 20131128
  13. ACTOS [Suspect]
     Active Substance: PIOGLITAZONE HYDROCHLORIDE
     Indication: TYPE 2 DIABETES MELLITUS
     Dosage: 15 MG, QD
     Route: 048
     Dates: start: 20110519, end: 20140123
  14. JANUVIA [Concomitant]
     Active Substance: SITAGLIPTIN PHOSPHATE
     Indication: TYPE 2 DIABETES MELLITUS
     Dosage: 50 MG, QD
     Route: 048
  15. METGLUCO [Concomitant]
     Active Substance: METFORMIN HYDROCHLORIDE
     Dosage: UNK UNK, TID
     Route: 048
     Dates: start: 20110908
  16. KINEDAK [Concomitant]
     Active Substance: EPALRESTAT
     Dosage: 50 MG, TID
     Route: 048
     Dates: start: 20110811
  17. NIFLAN [Concomitant]
     Dosage: UNK, QID
     Route: 031
     Dates: start: 20111004

REACTIONS (1)
  - Bladder cancer stage 0, with cancer in situ [Recovering/Resolving]
